FAERS Safety Report 6555654-0 (Version None)
Quarter: 2010Q1

REPORT INFORMATION
  Report Type: 
  Country: None (occurrence: None)
  Receive Date: 20100128
  Receipt Date: 20100116
  Transmission Date: 20100710
  Serious: Yes (Hospitalization, Other)
  Sender: FDA-Public Use
  Company Number: PHHY2010US02438

PATIENT
  Age: 37 Year
  Sex: Female

DRUGS (2)
  1. CLOZAPINE [Suspect]
     Indication: MENTAL DISORDER
  2. SULFAMETHOXAZOLE AND TRIMETHOPRIM [Concomitant]

REACTIONS (7)
  - BACTERAEMIA [None]
  - DYSLIPIDAEMIA [None]
  - GRANULOCYTOPENIA [None]
  - MENTAL DISORDER [None]
  - NEUTROPHIL COUNT DECREASED [None]
  - TOOTH ABSCESS [None]
  - WHITE BLOOD CELL COUNT DECREASED [None]
